FAERS Safety Report 7120300-4 (Version None)
Quarter: 2010Q4

REPORT INFORMATION
  Report Type: 
  Country: None (occurrence: None)
  Receive Date: 20101123
  Receipt Date: 20101117
  Transmission Date: 20110411
  Serious: Yes (Hospitalization, Other)
  Sender: FDA-Public Use
  Company Number: FR-BRISTOL-MYERS SQUIBB COMPANY-15300536

PATIENT
  Age: 70 Year
  Sex: Female

DRUGS (5)
  1. ORENCIA [Suspect]
     Indication: RHEUMATOID ARTHRITIS
     Dosage: 500MG IV FROM 20NOV08-23OCT09,400MG 23OCT09-01DEC09
     Route: 042
     Dates: start: 20081120, end: 20091201
  2. SERETIDE [Concomitant]
     Indication: BRONCHIECTASIS
  3. BRONCHODUAL [Concomitant]
     Indication: BRONCHIECTASIS
  4. ARAVA [Concomitant]
     Indication: RHEUMATOID ARTHRITIS
  5. CORTANCYL [Concomitant]
     Indication: RHEUMATOID ARTHRITIS

REACTIONS (3)
  - COLITIS ULCERATIVE [None]
  - OEDEMA PERIPHERAL [None]
  - PROCTOCOLITIS [None]
